FAERS Safety Report 4707124-X (Version None)
Quarter: 2005Q3

REPORT INFORMATION
  Report Type: 
  Country: None (occurrence: None)
  Receive Date: 20050701
  Receipt Date: 20050617
  Transmission Date: 20060218
  Serious: Yes (Hospitalization)
  Sender: FDA-Public Use
  Company Number: 2005-00782

PATIENT
  Age: 54 Year
  Sex: Male
  Weight: 87.0906 kg

DRUGS (3)
  1. VELCADE [Suspect]
     Indication: MULTIPLE MYELOMA
     Dosage: 1.00 MG/M2 INTRAVENOUS
     Route: 042
     Dates: start: 20050221, end: 20050321
  2. SCUI-469 [Suspect]
     Indication: MULTIPLE MYELOMA
     Dosage: 60.00 MG TID ORAL
     Route: 048
     Dates: start: 20050110, end: 20050321
  3. SCUI-469 [Suspect]
     Indication: MULTIPLE MYELOMA
     Dosage: 60.00 MG TID ORAL
     Route: 048
     Dates: start: 20050401

REACTIONS (1)
  - KLEBSIELLA BACTERAEMIA [None]
